FAERS Safety Report 6237365-4 (Version None)
Quarter: 2009Q2

REPORT INFORMATION
  Report Type: 
  Country: None (occurrence: None)
  Receive Date: 20090619
  Receipt Date: 20090611
  Transmission Date: 20091009
  Serious: Yes (Other)
  Sender: FDA-Public Use
  Company Number: PHHY2009IL23263

PATIENT
  Age: 40 Year
  Sex: Female

DRUGS (2)
  1. ZOMETA [Suspect]
     Indication: BREAST CANCER METASTATIC
  2. VINORELBINE (AS TARTRATE) [Concomitant]

REACTIONS (5)
  - ERYTHEMA [None]
  - METASTASIS [None]
  - OSTEONECROSIS [None]
  - PARAESTHESIA [None]
  - SWELLING [None]
